FAERS Safety Report 23961909 (Version 6)
Quarter: 2024Q4

REPORT INFORMATION
  Report Type: Spontaneous
  Country: US (occurrence: US)
  Receive Date: 20240611
  Receipt Date: 20241231
  Transmission Date: 20250115
  Serious: No
  Sender: PFIZER
  Company Number: US-PFIZER INC-202400186183

PATIENT
  Age: 12 Year
  Sex: Male

DRUGS (3)
  1. GENOTROPIN [Suspect]
     Active Substance: SOMATROPIN
     Indication: Growth hormone deficiency
     Dosage: INJECT 1.8 MG INTO THE SKIN DAILY
     Route: 058
     Dates: start: 20240301
  2. GENOTROPIN [Suspect]
     Active Substance: SOMATROPIN
     Dosage: INJECT 1.6 MG UNDER THE SKIN DAILY. DISCARD 28 DAYS AFTER MIXING
     Route: 058
  3. VISTARIL [Concomitant]
     Active Substance: HYDROXYZINE PAMOATE
     Dosage: 1 CAPSULE AT BEDTIME
     Route: 048

REACTIONS (6)
  - Drug dose omission by device [Unknown]
  - Device malfunction [Unknown]
  - Device breakage [Unknown]
  - Device leakage [Unknown]
  - Device safety feature issue [Unknown]
  - Syringe issue [Unknown]

NARRATIVE: CASE EVENT DATE: 20240101
